FAERS Safety Report 13609750 (Version 1)
Quarter: 2017Q2

REPORT INFORMATION
  Report Type: Spontaneous
  Country: US (occurrence: US)
  Receive Date: 20170602
  Receipt Date: 20170602
  Transmission Date: 20170830
  Serious: No
  Sender: FDA-Public Use
  Company Number: US-PFIZER INC-2879354

PATIENT
  Sex: Female
  Weight: 64.41 kg

DRUGS (2)
  1. KETOROLAC TROMETHAMINE. [Suspect]
     Active Substance: KETOROLAC TROMETHAMINE
     Indication: BACK PAIN
     Dosage: 30 MG, ONCE, INJECTION TO LEFT HIP
     Route: 050
     Dates: start: 20150326, end: 20150326
  2. HYDROMORPHONE HYDROCHLORIDE. [Suspect]
     Active Substance: HYDROMORPHONE HYDROCHLORIDE
     Indication: BACK PAIN
     Dosage: 1 MG, ONCE, INJECTION TO LEFT HIP
     Route: 050
     Dates: start: 20150326, end: 20150326

REACTIONS (7)
  - Vomiting [Recovered/Resolved]
  - Diarrhoea [Unknown]
  - Poor quality drug administered [Unknown]
  - Migraine [Recovered/Resolved]
  - Gastric disorder [Unknown]
  - Product quality issue [Unknown]
  - Nausea [Recovered/Resolved]

NARRATIVE: CASE EVENT DATE: 2015
